FAERS Safety Report 7970264-6 (Version None)
Quarter: 2011Q4

REPORT INFORMATION
  Report Type: 
  Country: None (occurrence: None)
  Receive Date: 20111212
  Receipt Date: 20111202
  Transmission Date: 20120403
  Serious: Yes (Hospitalization, Other)
  Sender: FDA-Public Use
  Company Number: US-ASTELLAS-2011US008076

PATIENT
  Sex: Male

DRUGS (19)
  1. ALIMTA [Suspect]
     Indication: OROPHARYNGEAL CANCER RECURRENT
     Dosage: UNK
     Route: 065
  2. EXTERNAL BEAM RADIATION THERAPY [Suspect]
     Indication: OROPHARYNGEAL CANCER RECURRENT
     Dosage: WEEKLY, EX. BEAM
     Route: 065
     Dates: start: 20111013
  3. MIRALAX [Suspect]
     Indication: PRODUCT USED FOR UNKNOWN INDICATION
     Dosage: UNK
     Route: 048
  4. COLACE [Concomitant]
     Indication: PRODUCT USED FOR UNKNOWN INDICATION
     Dosage: 300 MG, QHS
     Route: 048
  5. FOLIC ACID [Concomitant]
     Indication: PRODUCT USED FOR UNKNOWN INDICATION
     Dosage: 1 MG, UID/QD
     Route: 048
  6. OXYCODONE HCL [Concomitant]
     Indication: PAIN
     Dosage: 10 MG, PRN, Q 4HRS
     Route: 048
  7. ATIVAN [Concomitant]
     Indication: NAUSEA
     Dosage: 1 MG, Q8 HOURS, PRN
     Route: 048
  8. LEVOTHYROXINE SODIUM [Concomitant]
     Indication: PRODUCT USED FOR UNKNOWN INDICATION
     Dosage: 1 DF, UID/QD
     Route: 048
  9. GLIMEPIRIDE [Concomitant]
     Indication: PRODUCT USED FOR UNKNOWN INDICATION
     Dosage: 1 MG, UID/QD
     Route: 048
  10. ZOFRAN [Concomitant]
     Indication: NAUSEA
     Dosage: 8 MG, Q6 HOURS
     Route: 048
  11. PROAIR HFA [Concomitant]
     Indication: PRODUCT USED FOR UNKNOWN INDICATION
     Dosage: 2 PUFFS, Q 4HRS
     Route: 065
  12. NEURONTIN [Concomitant]
     Indication: PRODUCT USED FOR UNKNOWN INDICATION
     Dosage: 400 MG, TID
     Route: 048
  13. PROCHLORPERAZINE MALEATE [Concomitant]
     Indication: NAUSEA
     Dosage: 5 MG, Q 4 HRS.
     Route: 065
  14. AMBIEN [Concomitant]
     Indication: PRODUCT USED FOR UNKNOWN INDICATION
     Dosage: 12.5 MG, QHS
     Route: 048
  15. LIDODERM [Concomitant]
     Indication: PRODUCT USED FOR UNKNOWN INDICATION
     Dosage: 1 DF, PRN
     Route: 061
  16. ATIVAN [Concomitant]
     Indication: ANXIETY
  17. DURAGESIC-100 [Concomitant]
     Indication: PRODUCT USED FOR UNKNOWN INDICATION
     Dosage: 1 DF, Q 48 HRS
     Route: 061
  18. ERLOTINIB HYDROCHLORIDE [Suspect]
     Dosage: 150 MG, UID/QD
     Route: 048
     Dates: end: 20111028
  19. ERLOTINIB HYDROCHLORIDE [Suspect]
     Indication: OROPHARYNGEAL CANCER RECURRENT
     Dosage: 150 MG, UID/QD
     Route: 048
     Dates: start: 20111012

REACTIONS (12)
  - VOMITING [None]
  - HYPOPHAGIA [None]
  - ALANINE AMINOTRANSFERASE INCREASED [None]
  - DEHYDRATION [None]
  - FEBRILE NEUTROPENIA [None]
  - OFF LABEL USE [None]
  - MUSCULAR WEAKNESS [None]
  - ASPIRATION [None]
  - ASPARTATE AMINOTRANSFERASE INCREASED [None]
  - DIARRHOEA [None]
  - HYPOXIA [None]
  - FATIGUE [None]
